FAERS Safety Report 11285298 (Version 4)
Quarter: 2015Q3

REPORT INFORMATION
  Report Type: Report from Study
  Country: DE (occurrence: DE)
  Receive Date: 20150720
  Receipt Date: 20150828
  Transmission Date: 20151125
  Serious: Yes (Hospitalization)
  Sender: FDA-Public Use
  Company Number: PHHO2015DE011404

PATIENT
  Age: 76 Year
  Sex: Female
  Weight: 67 kg

DRUGS (15)
  1. EXEMESTANE. [Suspect]
     Active Substance: EXEMESTANE
     Indication: BREAST CANCER
     Dosage: 25 MG, QD
     Route: 048
     Dates: start: 20150615
  2. MOTILIUM [Concomitant]
     Active Substance: DOMPERIDONE
     Indication: VOMITING
  3. CEFUROXIM [Concomitant]
     Active Substance: CEFUROXIME
     Indication: PRODUCT USED FOR UNKNOWN INDICATION
     Dosage: 1500 MG, TID
     Route: 042
     Dates: start: 20150712
  4. SAB SIMPLEX [Concomitant]
     Indication: ENTERITIS
     Dosage: 40 UNKNOWNTRE THREE TIMES A DAY
     Route: 048
  5. L-THYROXIN [Concomitant]
     Active Substance: LEVOTHYROXINE SODIUM
     Indication: PRODUCT USED FOR UNKNOWN INDICATION
     Dosage: 125 MG, QD
     Route: 048
     Dates: start: 1975
  6. CANDECOR [Concomitant]
     Indication: HYPERTENSION
     Dosage: 8 MG, QD
     Route: 048
     Dates: start: 2014
  7. METFORMIN [Concomitant]
     Active Substance: METFORMIN HYDROCHLORIDE
     Indication: DIABETES MELLITUS
     Dosage: 850 MG, BID
     Route: 048
     Dates: start: 2014
  8. MAGNESIUM [Concomitant]
     Active Substance: MAGNESIUM
     Indication: PRODUCT USED FOR UNKNOWN INDICATION
     Dosage: 1 UNKNOWN THREE
     Route: 048
  9. PANTOPRAZOLE SODIUM. [Concomitant]
     Active Substance: PANTOPRAZOLE SODIUM
     Indication: PRODUCT USED FOR UNKNOWN INDICATION
     Dosage: 20 MG, QD
     Route: 048
     Dates: start: 2014
  10. CALCIGEN [Concomitant]
     Indication: PRODUCT USED FOR UNKNOWN INDICATION
     Dosage: 600 MG, QD
     Route: 048
     Dates: start: 2014
  11. RIOPAN [Concomitant]
     Active Substance: MAGALDRATE
     Indication: DYSPEPSIA
     Dosage: 1 UNKNOWN THREE TIMES A DAY
     Route: 048
  12. MOTILIUM [Concomitant]
     Active Substance: DOMPERIDONE
     Indication: NAUSEA
     Dosage: 20 UNKNOWN THREE TIMES A DAY
     Route: 048
     Dates: start: 20150626
  13. AFINITOR [Suspect]
     Active Substance: EVEROLIMUS
     Indication: BREAST CANCER
     Dosage: 10 MG, QD
     Route: 048
     Dates: start: 20150615, end: 20150703
  14. ZOVIRAX [Concomitant]
     Active Substance: ACYCLOVIR
     Indication: ORAL HERPES
     Dosage: UNKNOWN AS NEEDED
     Route: 061
     Dates: start: 20150625
  15. TARGIN [Concomitant]
     Active Substance: NALOXONE HYDROCHLORIDE\OXYCODONE HYDROCHLORIDE
     Indication: PAIN
     Dosage: 20 MG, QD
     Route: 048
     Dates: start: 2013

REACTIONS (2)
  - Stomatitis [Recovered/Resolved]
  - C-reactive protein increased [Not Recovered/Not Resolved]

NARRATIVE: CASE EVENT DATE: 20150703
